FAERS Safety Report 13278628 (Version 1)
Quarter: 2017Q1

REPORT INFORMATION
  Report Type: Spontaneous
  Country: US (occurrence: US)
  Receive Date: 20170228
  Receipt Date: 20170228
  Transmission Date: 20170428
  Serious: Yes (Hospitalization, Other)
  Sender: FDA-Public Use
  Company Number: US-TEIKOKU PHARMA USA-TPU2017-00109

PATIENT
  Weight: 103.51 kg

DRUGS (2)
  1. LIDODERM [Suspect]
     Active Substance: LIDOCAINE
     Indication: PAIN IN EXTREMITY
     Dosage: 1 PATCH CUT IN HALF APPLIED TO EACH LEG FOR 12 HOURS ON THEN 12 HOURS OFF
     Route: 061
     Dates: start: 2005, end: 2005
  2. LIDODERM [Suspect]
     Active Substance: LIDOCAINE
     Indication: SCAR PAIN
     Dosage: 1 PATCH APPLIED ON EACH SIDE OF THE MIDDLE OF THE BACK FOR 12 HOURS ON AND THEN 12 HOURS OFF AS NEED
     Route: 061
     Dates: start: 2006, end: 2006

REACTIONS (8)
  - Abdominal pain [Unknown]
  - Fall [Unknown]
  - Transient ischaemic attack [Not Recovered/Not Resolved]
  - Lung infection [Recovered/Resolved]
  - Herpes zoster [Not Recovered/Not Resolved]
  - Pneumonia [Recovered/Resolved]
  - Pneumonia [Recovered/Resolved]
  - Amnesia [Not Recovered/Not Resolved]

NARRATIVE: CASE EVENT DATE: 2006
